FAERS Safety Report 6929217-9 (Version None)
Quarter: 2010Q3

REPORT INFORMATION
  Report Type: 
  Country: None (occurrence: None)
  Receive Date: 20100817
  Receipt Date: 20100806
  Transmission Date: 20110219
  Serious: Yes (Hospitalization, Other)
  Sender: FDA-Public Use
  Company Number: US-BAXTER-2010BH012176

PATIENT
  Age: 6 Year
  Sex: Male
  Weight: 17 kg

DRUGS (8)
  1. CYCLOPHOSPHAMIDE [Suspect]
     Indication: CHEMOTHERAPY
     Route: 065
     Dates: start: 20100318
  2. PS PRODUCT NOT LISTED [Suspect]
     Indication: NEUROBLASTOMA
     Route: 048
     Dates: start: 20100113, end: 20100310
  3. TOPOTECAN [Suspect]
     Indication: CHEMOTHERAPY
     Route: 065
     Dates: start: 20100318
  4. RADIATION THERAPY [Suspect]
     Indication: NEUROBLASTOMA
     Route: 065
     Dates: start: 20100322
  5. MORPHINE [Concomitant]
     Indication: PRODUCT USED FOR UNKNOWN INDICATION
     Route: 042
  6. BACTRIM [Concomitant]
     Indication: PRODUCT USED FOR UNKNOWN INDICATION
     Route: 065
     Dates: start: 20100113, end: 20100310
  7. NEUPOGEN [Concomitant]
     Indication: PRODUCT USED FOR UNKNOWN INDICATION
     Route: 065
  8. CEFEPIME [Concomitant]
     Indication: PRODUCT USED FOR UNKNOWN INDICATION
     Route: 042

REACTIONS (5)
  - FEBRILE NEUTROPENIA [None]
  - LYMPHOPENIA [None]
  - NEUTROPENIA [None]
  - PAIN IN EXTREMITY [None]
  - THROMBOCYTOPENIA [None]
